FAERS Safety Report 18410959 (Version 1)
Quarter: 2020Q4

REPORT INFORMATION
  Report Type: Spontaneous
  Country: US (occurrence: US)
  Receive Date: 20201021
  Receipt Date: 20201021
  Transmission Date: 20210114
  Serious: No
  Sender: FDA-Public Use
  Company Number: US-LUPIN PHARMACEUTICALS INC.-2020-04413

PATIENT
  Age: 63 Year
  Sex: Male

DRUGS (6)
  1. AMLODIPINE [Suspect]
     Active Substance: AMLODIPINE BESYLATE
     Indication: BLOOD PRESSURE ABNORMAL
     Dosage: UNK
     Route: 065
     Dates: start: 20200716
  2. METFORMIN HYDROCHLORIDE EXTENDED RELEASE TABLET USP 1000 MG [Suspect]
     Active Substance: METFORMIN HYDROCHLORIDE
     Dosage: 1000 MILLIGRAM, BID
     Route: 065
  3. METFORMIN HYDROCHLORIDE EXTENDED RELEASE TABLET USP 500 MG [Suspect]
     Active Substance: METFORMIN HYDROCHLORIDE
     Dosage: 500 MILLIGRAM, QD
     Route: 065
  4. METFORMIN HYDROCHLORIDE EXTENDED RELEASE TABLET USP 500 MG [Suspect]
     Active Substance: METFORMIN HYDROCHLORIDE
     Indication: DIABETES MELLITUS
     Dosage: 500 MILLIGRAM, BID
     Route: 065
  5. METFORMIN HYDROCHLORIDE EXTENDED RELEASE TABLET USP 1000 MG [Suspect]
     Active Substance: METFORMIN HYDROCHLORIDE
     Indication: DIABETES MELLITUS
     Dosage: 1000 MILLIGRAM, QD
     Route: 065
  6. LISINOPRIL. [Suspect]
     Active Substance: LISINOPRIL
     Indication: BLOOD PRESSURE ABNORMAL
     Dosage: UNK
     Route: 065
     Dates: end: 202006

REACTIONS (4)
  - General physical condition abnormal [Unknown]
  - Blood potassium increased [Recovering/Resolving]
  - Recalled product administered [Unknown]
  - No adverse event [Unknown]
